FAERS Safety Report 15207520 (Version 2)
Quarter: 2019Q3

REPORT INFORMATION
  Report Type: Spontaneous
  Country: US (occurrence: US)
  Receive Date: 20180727
  Receipt Date: 20190924
  Transmission Date: 20191004
  Serious: Yes (Other)
  Sender: FDA-Public Use
  Company Number: US-SA-2018SA204195

PATIENT
  Age: 40 Year
  Sex: Male
  Weight: 133.3 kg

DRUGS (1)
  1. AUBAGIO [Suspect]
     Active Substance: TERIFLUNOMIDE
     Indication: MULTIPLE SCLEROSIS
     Dosage: 14 MG
     Route: 048
     Dates: start: 20180716, end: 201909

REACTIONS (7)
  - Muscular weakness [Unknown]
  - Multiple sclerosis [Unknown]
  - Gait disturbance [Unknown]
  - Muscle contractions involuntary [Unknown]
  - Memory impairment [Unknown]
  - Pain [Unknown]
  - Nausea [Unknown]
